FAERS Safety Report 6527468-9 (Version None)
Quarter: 2010Q1

REPORT INFORMATION
  Report Type: 
  Country: None (occurrence: None)
  Receive Date: 20100104
  Receipt Date: 20100104
  Transmission Date: 20100710
  Serious: Yes (Hospitalization, Disabling, Other)
  Sender: FDA-Public Use
  Company Number: None

PATIENT
  Age: 19 Year
  Sex: Female
  Weight: 33.1126 kg

DRUGS (1)
  1. CLONAZEPAM [Suspect]
     Indication: CONVULSION
     Dosage: .5 MG 1X NIGHTLY PO
     Route: 048
     Dates: start: 20091207, end: 20091231

REACTIONS (4)
  - CONDITION AGGRAVATED [None]
  - CONVULSION [None]
  - PRODUCT QUALITY ISSUE [None]
  - PRODUCT SUBSTITUTION ISSUE [None]
